FAERS Safety Report 4381630-2 (Version None)
Quarter: 2004Q2

REPORT INFORMATION
  Report Type: 
  Country: None (occurrence: None)
  Receive Date: 20040621
  Receipt Date: 20040609
  Transmission Date: 20050107
  Serious: Yes (Other)
  Sender: FDA-Public Use
  Company Number: AU-ROCHE-370439

PATIENT
  Sex: Male

DRUGS (2)
  1. ROACCUTANE [Suspect]
     Indication: ACNE
     Route: 048
  2. ROACCUTANE [Suspect]
     Route: 048

REACTIONS (11)
  - AGGRESSION [None]
  - ALCOHOL INTOLERANCE [None]
  - APATHY [None]
  - DECREASED APPETITE [None]
  - DEPRESSION [None]
  - DRY SKIN [None]
  - INSOMNIA [None]
  - IRRITABILITY [None]
  - SOCIAL AVOIDANT BEHAVIOUR [None]
  - SUICIDAL IDEATION [None]
  - SUICIDE ATTEMPT [None]
